FAERS Safety Report 22976196 (Version 2)
Quarter: 2023Q4

REPORT INFORMATION
  Report Type: Spontaneous
  Country: US (occurrence: US)
  Receive Date: 20230925
  Receipt Date: 20231027
  Transmission Date: 20240110
  Serious: No
  Sender: FDA-Public Use
  Company Number: US-GSKCCFUS-Case-01807319_AE-101195

PATIENT
  Sex: Female

DRUGS (4)
  1. ADVAIR DISKUS [Suspect]
     Active Substance: FLUTICASONE PROPIONATE\SALMETEROL XINAFOATE
     Indication: Product used for unknown indication
     Dosage: 250/50
     Route: 055
  2. ADVAIR DISKUS [Suspect]
     Active Substance: FLUTICASONE PROPIONATE\SALMETEROL XINAFOATE
     Dosage: 500/50
     Route: 055
     Dates: start: 20230911
  3. BREO ELLIPTA [Suspect]
     Active Substance: FLUTICASONE FUROATE\VILANTEROL TRIFENATATE
     Indication: Product used for unknown indication
     Dosage: 100/25 MCG
  4. PNEUMOCOCCAL VACCINE POLYVALENT [Suspect]
     Active Substance: PNEUMOCOCCAL VACCINE POLYVALENT
     Indication: Product used for unknown indication
     Dosage: UNK

REACTIONS (7)
  - Back pain [Unknown]
  - Chest discomfort [Unknown]
  - Dizziness [Unknown]
  - Dysphonia [Unknown]
  - Condition aggravated [Unknown]
  - Candida infection [Unknown]
  - Drug ineffective [Unknown]
